FAERS Safety Report 25548462 (Version 1)
Quarter: 2025Q3

REPORT INFORMATION
  Report Type: Spontaneous
  Country: US (occurrence: US)
  Receive Date: 20250714
  Receipt Date: 20250714
  Transmission Date: 20251021
  Serious: No
  Sender: GLENMARK
  Company Number: US-GLENMARK PHARMACEUTICALS-2025GMK097286

PATIENT

DRUGS (1)
  1. ONDANSETRON [Suspect]
     Active Substance: ONDANSETRON
     Indication: Nausea
     Route: 048

REACTIONS (4)
  - Poor quality product administered [Unknown]
  - Product use in unapproved indication [Unknown]
  - Product physical issue [Unknown]
  - Product packaging difficult to open [Unknown]
